FAERS Safety Report 12212354 (Version 1)
Quarter: 2016Q1

REPORT INFORMATION
  Report Type: Other
  Country: US (occurrence: US)
  Receive Date: 20160325
  Receipt Date: 20160325
  Transmission Date: 20160526
  Serious: No
  Sender: FDA-Public Use
  Company Number: US-DEP_02595_2015

PATIENT
  Age: 69 Year
  Sex: Female
  Weight: 92 kg

DRUGS (8)
  1. GRALISE [Suspect]
     Active Substance: GABAPENTIN
     Indication: MUSCLE TIGHTNESS
     Route: 048
     Dates: start: 20150316
  2. GRALISE [Suspect]
     Active Substance: GABAPENTIN
     Indication: MUSCLE SPASMS
     Route: 048
     Dates: start: 20150316
  3. GRALISE [Suspect]
     Active Substance: GABAPENTIN
     Indication: PAIN IN EXTREMITY
     Route: 048
     Dates: start: 20150316
  4. GRALISE [Suspect]
     Active Substance: GABAPENTIN
     Indication: OFF LABEL USE
     Route: 048
     Dates: start: 20150316
  5. VITAMIN D [Concomitant]
     Active Substance: CHOLECALCIFEROL
     Dosage: DF
  6. CALCIUM WITH MAGNESIUM [Concomitant]
     Dosage: DF
  7. VITAMIN B COMPLEX [Concomitant]
     Active Substance: CYANOCOBALAMIN\DEXPANTHENOL\NIACINAMIDE\PYRIDOXINE HYDROCHLORIDE\RIBOFLAVIN 5^-PHOSPHATE SODIUM\THIAMINE HYDROCHLORIDE\VITAMIN B COMPLEX
     Dosage: DF
  8. ARIMIDEX [Concomitant]
     Active Substance: ANASTROZOLE
     Indication: BREAST CANCER
     Dosage: DF

REACTIONS (3)
  - Myalgia [Not Recovered/Not Resolved]
  - Drug ineffective for unapproved indication [Not Recovered/Not Resolved]
  - Insomnia [Unknown]

NARRATIVE: CASE EVENT DATE: 20150316
